FAERS Safety Report 5838186-4 (Version None)
Quarter: 2008Q3

REPORT INFORMATION
  Report Type: 
  Country: None (occurrence: None)
  Receive Date: 20080808
  Receipt Date: 20080730
  Transmission Date: 20090109
  Serious: Yes (Hospitalization)
  Sender: FDA-Public Use
  Company Number: US-JNJFOC-20080800485

PATIENT
  Sex: Female
  Weight: 68.04 kg

DRUGS (6)
  1. DURAGESIC-100 [Suspect]
     Indication: PAIN
     Route: 062
  2. PEPCID [Concomitant]
     Indication: GASTRIC DISORDER
     Route: 048
  3. CARAFATE [Concomitant]
     Indication: GASTRIC DISORDER
     Route: 048
  4. ESTRACE [Concomitant]
     Indication: HORMONE REPLACEMENT THERAPY
     Route: 048
  5. UNSPECIFIED EYE DROPS [Concomitant]
     Indication: CORNEAL DISORDER
     Route: 047
  6. UNSPECIFIED EYE DROPS [Concomitant]
     Indication: GLAUCOMA
     Route: 047

REACTIONS (1)
  - SPINAL COLUMN STENOSIS [None]
